FAERS Safety Report 4361884-9 (Version None)
Quarter: 2004Q2

REPORT INFORMATION
  Report Type: 
  Country: None (occurrence: None)
  Receive Date: 20040521
  Receipt Date: 20040329
  Transmission Date: 20050107
  Serious: No
  Sender: FDA-Public Use
  Company Number: US-GLAXOSMITHKLINE-A0504919A

PATIENT
  Age: 34 Year
  Sex: Female

DRUGS (4)
  1. WELLBUTRIN XL [Suspect]
     Indication: DEPRESSION
     Dosage: 450MG PER DAY
     Route: 048
  2. ADDERALL 10 [Concomitant]
  3. XANAX [Concomitant]
  4. SEROQUEL [Concomitant]

REACTIONS (1)
  - CONVULSION [None]
